FAERS Safety Report 5702478-X (Version None)
Quarter: 2008Q2

REPORT INFORMATION
  Report Type: 
  Country: None (occurrence: None)
  Receive Date: 20080411
  Receipt Date: 20080402
  Transmission Date: 20081010
  Serious: Yes (Other)
  Sender: FDA-Public Use
  Company Number: US-JNJFOC-20080305425

PATIENT
  Sex: Male
  Weight: 84.37 kg

DRUGS (15)
  1. FENTANYL TRANSDERMAL SYSTEM [Suspect]
     Indication: NEURALGIA
     Route: 062
  2. FENTANYL TRANSDERMAL SYSTEM [Suspect]
     Indication: PAIN
     Route: 062
  3. COSOPT [Concomitant]
     Indication: GLAUCOMA
     Dosage: ONE DROP IN RIGHT EYE  EACH EYE
     Route: 047
  4. VERAPAMIL [Concomitant]
     Indication: BLOOD PRESSURE
     Route: 048
  5. HYDROCHLOROTHIAZIDE [Concomitant]
     Indication: BLOOD PRESSURE
     Route: 048
  6. MORPHINE SUL INJ [Concomitant]
     Indication: PAIN
     Route: 048
  7. VALIUM [Concomitant]
     Indication: POST-TRAUMATIC STRESS DISORDER
     Route: 048
  8. VALIUM [Concomitant]
     Indication: NERVOUSNESS
     Route: 048
  9. POTASSIUM CHLORIDE [Concomitant]
     Indication: BLOOD PRESSURE
     Route: 048
  10. LASIX [Concomitant]
     Indication: FLUID RETENTION
     Route: 048
  11. LUMIGAN [Concomitant]
     Indication: GLAUCOMA
     Dosage: 1 DROP IN BOTH EYES DAILY
     Route: 047
  12. ALPHAGAN [Concomitant]
     Dosage: RIGHT EYE
     Route: 047
  13. ALPHAGAN [Concomitant]
     Indication: GLAUCOMA
     Dosage: ONE DROP IN RIGHT EYE
     Route: 047
  14. ALBUTEROL [Concomitant]
     Indication: BRONCHIAL DISORDER
     Dosage: 1 PUFF AS NEEDED
     Route: 055
  15. LUMIGAN [Concomitant]

REACTIONS (13)
  - ANOREXIA [None]
  - ASTHENIA [None]
  - ENDOSCOPY UPPER GASTROINTESTINAL TRACT ABNORMAL [None]
  - GASTRIC DISORDER [None]
  - INAPPROPRIATE SCHEDULE OF DRUG ADMINISTRATION [None]
  - MALAISE [None]
  - NERVE INJURY [None]
  - PHARMACEUTICAL PRODUCT COMPLAINT [None]
  - PNEUMONIA [None]
  - POLYPECTOMY [None]
  - THERAPEUTIC RESPONSE DECREASED [None]
  - WEIGHT DECREASED [None]
  - WRONG TECHNIQUE IN DRUG USAGE PROCESS [None]
